FAERS Safety Report 17222190 (Version 1)
Quarter: 2020Q1

REPORT INFORMATION
  Report Type: Spontaneous
  Country: DE (occurrence: DE)
  Receive Date: 20200101
  Receipt Date: 20200101
  Transmission Date: 20200409
  Serious: Yes (Hospitalization)
  Sender: FDA-Public Use
  Company Number: DE-TEVA-2019-DE-1159202

PATIENT
  Age: 88 Year
  Sex: Male

DRUGS (6)
  1. ISMN [Concomitant]
     Active Substance: ISOSORBIDE MONONITRATE
     Dosage: 40 MG
  2. AMIODARON [Suspect]
     Active Substance: AMIODARONE
     Dosage: 200 MG
  3. VELMETIA [Concomitant]
     Active Substance: METFORMIN\SITAGLIPTIN
     Dosage: 50|1000 MG
  4. SIMVASTATIN. [Concomitant]
     Active Substance: SIMVASTATIN
     Dosage: 20 MG
  5. RAMILICH COMP [Concomitant]
     Active Substance: HYDROCHLOROTHIAZIDE\RAMIPRIL
     Dosage: 5|25 MG
  6. MARCUMAR [Concomitant]
     Active Substance: PHENPROCOUMON
     Dosage: 3 MG/2

REACTIONS (3)
  - Somnolence [Unknown]
  - Bradycardia [Unknown]
  - Hypotension [Unknown]
